FAERS Safety Report 20925569 (Version 1)
Quarter: 2022Q2

REPORT INFORMATION
  Report Type: Spontaneous
  Country: US (occurrence: US)
  Receive Date: 20220607
  Receipt Date: 20220607
  Transmission Date: 20220721
  Serious: No
  Sender: FDA-Public Use
  Company Number: US-PERRIGO-21US005844

PATIENT
  Age: 56 Year
  Sex: Female
  Weight: 70.295 kg

DRUGS (1)
  1. MINOXIDIL [Suspect]
     Active Substance: MINOXIDIL
     Indication: Alopecia
     Dosage: 0.5 CAPFUL, QD
     Route: 061
     Dates: start: 20210426, end: 20210427

REACTIONS (3)
  - Rash [Not Recovered/Not Resolved]
  - Application site rash [Not Recovered/Not Resolved]
  - Eye swelling [Recovered/Resolved]

NARRATIVE: CASE EVENT DATE: 20210427
